FAERS Safety Report 16232146 (Version 1)
Quarter: 2019Q2

REPORT INFORMATION
  Report Type: Spontaneous
  Country: CN (occurrence: CN)
  Receive Date: 20190424
  Receipt Date: 20190424
  Transmission Date: 20190711
  Serious: Yes (Hospitalization)
  Sender: FDA-Public Use
  Company Number: CN-BAXTER-2019BAX007860

PATIENT
  Age: 34 Year
  Sex: Female
  Weight: 60 kg

DRUGS (4)
  1. 5% GLUCOSE  INJECTION [Suspect]
     Active Substance: DEXTROSE
     Indication: MEDICATION DILUTION
     Dosage: DILUTED WITH EPIRUBICIN FOR INJECTION 140 MG
     Route: 041
     Dates: start: 20190327, end: 20190327
  2. ENDOXAN [Suspect]
     Active Substance: CYCLOPHOSPHAMIDE
     Indication: BREAST CANCER
     Dosage: DILUTED WITH 0.9% NS 100 ML
     Route: 041
     Dates: start: 20190327, end: 20190327
  3. PHARMORUBICIN RD [Suspect]
     Active Substance: EPIRUBICIN
     Indication: BREAST CANCER
     Dosage: DILUTED WITH GLUCOSE 100 ML
     Route: 041
     Dates: start: 20190327, end: 20190327
  4. 0.9% SODIUM CHLORIDE INJECTION [Suspect]
     Active Substance: SODIUM CHLORIDE
     Indication: MEDICATION DILUTION
     Dosage: DILUTED WITH CYCLOPHOSPHAMIDE FOR INJECTION 1G
     Route: 041
     Dates: start: 20190327, end: 20190327

REACTIONS (1)
  - White blood cell count decreased [Recovering/Resolving]

NARRATIVE: CASE EVENT DATE: 20190405
